FAERS Safety Report 5809784-9 (Version None)
Quarter: 2008Q3

REPORT INFORMATION
  Report Type: 
  Country: None (occurrence: None)
  Receive Date: 20080715
  Receipt Date: 20080709
  Transmission Date: 20090109
  Serious: Yes (Other)
  Sender: FDA-Public Use
  Company Number: US-ASTRAZENECA-2008UW00798

PATIENT
  Age: 46 Year
  Sex: Female
  Weight: 81.8 kg

DRUGS (8)
  1. SEROQUEL [Suspect]
     Indication: SLEEP DISORDER
     Dosage: 25 MG, 100 MG, 300 MG, 400 MG
     Route: 048
     Dates: start: 20000101
  2. ABILIFY [Concomitant]
     Dates: start: 20030101
  3. RISPERDAL [Concomitant]
     Dates: start: 20020101
  4. HALDOL [Concomitant]
  5. SOLIAN [Concomitant]
  6. THORAZINE [Concomitant]
  7. ZYPREXA [Concomitant]
  8. PAXIL [Concomitant]

REACTIONS (5)
  - BLOOD CHOLESTEROL INCREASED [None]
  - DIABETES MELLITUS [None]
  - GLYCOSURIA [None]
  - HYPERGLYCAEMIA [None]
  - LOSS OF CONSCIOUSNESS [None]
